FAERS Safety Report 8807141 (Version 1)
Quarter: 2012Q4

REPORT INFORMATION
  Report Type: 
  Country: ZA (occurrence: ZA)
  Receive Date: 20120925
  Receipt Date: 20120925
  Transmission Date: 20130627
  Serious: Yes (Death, Hospitalization)
  Sender: FDA-Public Use
  Company Number: PHHY2009ZA43440

PATIENT
  Age: 41 Year
  Sex: Male
  Weight: 90.5 kg

DRUGS (4)
  1. GLEEVEC [Suspect]
     Indication: CHRONIC MYELOID LEUKAEMIA
     Dosage: 600 mg, UNK
     Dates: start: 20090202
  2. GLEEVEC [Suspect]
     Dosage: 400 mg, UNK
     Route: 048
     Dates: start: 20090219
  3. CYTOSAR [Concomitant]
  4. DAUNOMYCIN [Concomitant]

REACTIONS (4)
  - Death [Fatal]
  - Acute myeloid leukaemia [Unknown]
  - Pain in extremity [Unknown]
  - Chronic myeloid leukaemia transformation [None]
